FAERS Safety Report 12067712 (Version 1)
Quarter: 2016Q1

REPORT INFORMATION
  Report Type: Spontaneous
  Country: US (occurrence: US)
  Receive Date: 20160211
  Receipt Date: 20160211
  Transmission Date: 20160526
  Serious: No
  Sender: FDA-Public Use
  Company Number: US-SMITH AND NEPHEW, INC-2014SMT00141

PATIENT
  Sex: Female
  Weight: 70.3 kg

DRUGS (2)
  1. UNSPECIFIED MEDICATIONS [Concomitant]
     Active Substance: UNSPECIFIED INGREDIENT
  2. REGRANEX [Suspect]
     Active Substance: BECAPLERMIN
     Indication: SKIN ULCER
     Dosage: UNK, 1X/DAY
     Route: 061

REACTIONS (2)
  - Application site pain [Not Recovered/Not Resolved]
  - Erythema [Not Recovered/Not Resolved]
